FAERS Safety Report 6722859-5 (Version None)
Quarter: 2010Q2

REPORT INFORMATION
  Report Type: 
  Country: None (occurrence: None)
  Receive Date: 20100512
  Receipt Date: 20100512
  Transmission Date: 20101027
  Serious: Yes (Hospitalization)
  Sender: FDA-Public Use
  Company Number: None

PATIENT
  Age: 64 Year
  Sex: Male
  Weight: 91.6 kg

DRUGS (1)
  1. ALTEPLASE [Suspect]
     Indication: PNEUMOTHORAX
     Dosage: 25 MG ONCE OTHER
     Route: 050
     Dates: start: 20100302, end: 20100302

REACTIONS (3)
  - BLOOD PRESSURE INADEQUATELY CONTROLLED [None]
  - HAEMORRHAGE [None]
  - SHOCK HAEMORRHAGIC [None]
